FAERS Safety Report 8707689 (Version 2)
Quarter: 2013Q2

REPORT INFORMATION
  Report Type: Report from Study
  Country: FR (occurrence: FR)
  Receive Date: 20120806
  Receipt Date: 20130607
  Transmission Date: 20140414
  Serious: Yes (Death, Life-Threatening, Hospitalization, Other)
  Sender: FDA-Public Use
  Company Number: FR-BIOGENIDEC-2012BI027676

PATIENT
  Age: 52 Year
  Sex: Male
  Weight: 82 kg

DRUGS (18)
  1. TYSABRI [Suspect]
     Indication: MULTIPLE SCLEROSIS
     Route: 042
     Dates: start: 20071210, end: 20080624
  2. GLATIRAMER ACETATE [Concomitant]
     Indication: MULTIPLE SCLEROSIS
     Route: 058
     Dates: start: 20081027, end: 20081206
  3. BACLOFEN [Concomitant]
  4. DUPHALAC [Concomitant]
  5. LANSOYL [Concomitant]
  6. NEURONTIN [Concomitant]
  7. INEXIUM [Concomitant]
  8. STILNOX [Concomitant]
  9. XANAX [Concomitant]
  10. PARACETAMOL [Concomitant]
  11. MOTILIUM [Concomitant]
  12. BIPROFENID [Concomitant]
  13. METHYLNALTREXONE [Concomitant]
  14. LOVENOX [Concomitant]
  15. ATARAX [Concomitant]
  16. SKENAN [Concomitant]
  17. ACTISKENAN [Concomitant]
  18. RIVOTRIL [Concomitant]

REACTIONS (2)
  - Lung squamous cell carcinoma metastatic [Fatal]
  - Chronic lymphocytic leukaemia [Unknown]
